FAERS Safety Report 5255710-3 (Version None)
Quarter: 2007Q1

REPORT INFORMATION
  Report Type: 
  Country: None (occurrence: None)
  Receive Date: 20070305
  Receipt Date: 20070221
  Transmission Date: 20070707
  Serious: Yes (Other)
  Sender: FDA-Public Use
  Company Number: NL-PFIZER INC-2007014513

PATIENT
  Sex: Male
  Weight: 82 kg

DRUGS (3)
  1. LYRICA [Suspect]
     Indication: NEURALGIA
     Route: 048
     Dates: start: 20070125, end: 20070205
  2. XALATAN [Concomitant]
     Route: 047
  3. BETOPTIC [Concomitant]
     Route: 047

REACTIONS (6)
  - ARTHRALGIA [None]
  - COGNITIVE DISORDER [None]
  - FEELING DRUNK [None]
  - MICTURITION DISORDER [None]
  - MUSCULOSKELETAL PAIN [None]
  - NEURALGIA [None]
